FAERS Safety Report 9193916 (Version 2)
Quarter: 2013Q2

REPORT INFORMATION
  Report Type: Report from Study
  Country: CA (occurrence: CA)
  Receive Date: 20130327
  Receipt Date: 20130415
  Transmission Date: 20140414
  Serious: Yes (Other)
  Sender: FDA-Public Use
  Company Number: CA-ROCHE-1195774

PATIENT
  Age: 74 Year
  Sex: Female
  Weight: 83.5 kg

DRUGS (7)
  1. ACTEMRA [Suspect]
     Indication: RHEUMATOID ARTHRITIS
     Route: 042
     Dates: start: 20130124, end: 20130315
  2. CELEBREX [Concomitant]
  3. METHOTREXATE [Concomitant]
     Route: 058
  4. FOLIC ACID [Concomitant]
  5. ACTONEL [Concomitant]
  6. DILTIAZEM [Concomitant]
  7. COVERSYL [Concomitant]

REACTIONS (8)
  - Vision blurred [Unknown]
  - Therapeutic response decreased [Unknown]
  - Oxygen saturation decreased [Unknown]
  - Hypotension [Unknown]
  - Heart rate decreased [Unknown]
  - Infusion related reaction [Unknown]
  - Rash erythematous [Unknown]
  - Malaise [Unknown]
